FAERS Safety Report 21865951 (Version 1)
Quarter: 2023Q1

REPORT INFORMATION
  Report Type: Spontaneous
  Country: US (occurrence: US)
  Receive Date: 20230116
  Receipt Date: 20230116
  Transmission Date: 20230417
  Serious: Yes (Other)
  Sender: FDA-Public Use
  Company Number: US-MLMSERVICE-20221229-4009575-1

PATIENT
  Age: 84 Year
  Sex: Female

DRUGS (2)
  1. METRONIDAZOLE [Suspect]
     Active Substance: METRONIDAZOLE
     Indication: Colitis
     Route: 065
  2. HYDRALAZINE [Concomitant]
     Active Substance: HYDRALAZINE HYDROCHLORIDE
     Indication: Colitis
     Route: 065

REACTIONS (11)
  - Pemphigoid [Unknown]
  - Dermatitis bullous [Unknown]
  - Pruritus [Unknown]
  - Disease progression [Unknown]
  - Dermatitis [Unknown]
  - Urticarial vasculitis [Unknown]
  - Rash papular [Unknown]
  - Vasculitis [Unknown]
  - Extravasation [Unknown]
  - Cutaneous vasculitis [Unknown]
  - Eosinophilia [Unknown]
